FAERS Safety Report 5468213-8 (Version None)
Quarter: 2007Q3

REPORT INFORMATION
  Report Type: 
  Country: None (occurrence: None)
  Receive Date: 20070926
  Receipt Date: 20070920
  Transmission Date: 20080115
  Serious: Yes (Life-Threatening)
  Sender: FDA-Public Use
  Company Number: DE-ASTRAZENECA-2007PK01954

PATIENT
  Age: 11782 Day
  Sex: Male
  Weight: 62 kg

DRUGS (2)
  1. SEROQUEL [Suspect]
     Indication: SCHIZOPHRENIA, PARANOID TYPE
     Dosage: DOSAGE FROM 50 TO 1000 MG
     Route: 048
     Dates: start: 20070712, end: 20070802
  2. SEROQUEL [Suspect]
     Route: 048
     Dates: start: 20070802, end: 20070829

REACTIONS (2)
  - LEUKOPENIA [None]
  - NEUTROPENIA [None]
